FAERS Safety Report 9393198 (Version 2)
Quarter: 2013Q3

REPORT INFORMATION
  Report Type: Report from Study
  Country: US (occurrence: US)
  Receive Date: 20130710
  Receipt Date: 20130723
  Transmission Date: 20140515
  Serious: Yes (Hospitalization)
  Sender: FDA-Public Use
  Company Number: US-ACTELION-A-NJ2013-85576

PATIENT
  Age: 13 Year
  Sex: Female

DRUGS (7)
  1. TRACLEER [Suspect]
     Indication: PULMONARY ARTERIAL HYPERTENSION
     Dosage: 125 MG, UNK
     Route: 048
     Dates: start: 20120829
  2. SILDENAFIL [Concomitant]
  3. TYVASO [Concomitant]
  4. NORVASC [Concomitant]
  5. FERROUS SULFATE [Concomitant]
  6. ZYRTEC [Concomitant]
  7. PEDIASURE [Concomitant]

REACTIONS (3)
  - Depression [Recovering/Resolving]
  - Suicide attempt [Recovering/Resolving]
  - Treatment noncompliance [Unknown]
